FAERS Safety Report 18362887 (Version 2)
Quarter: 2020Q4

REPORT INFORMATION
  Report Type: Spontaneous
  Country: US (occurrence: US)
  Receive Date: 20201009
  Receipt Date: 20201020
  Transmission Date: 20210114
  Serious: No
  Sender: FDA-Public Use
  Company Number: US-HETERO-HET2020US01107

PATIENT
  Sex: Female

DRUGS (1)
  1. LOSARTAN. [Suspect]
     Active Substance: LOSARTAN
     Indication: HYPERTENSION
     Dosage: 100 MG, BID(MORNING AND NIGHT)
     Route: 048

REACTIONS (2)
  - Crohn^s disease [Unknown]
  - Product substitution issue [Unknown]
